FAERS Safety Report 22589027 (Version 1)
Quarter: 2023Q2

REPORT INFORMATION
  Report Type: Spontaneous
  Country: GB (occurrence: GB)
  Receive Date: 20230612
  Receipt Date: 20230612
  Transmission Date: 20230722
  Serious: Yes (Other)
  Sender: FDA-Public Use
  Company Number: GB-MHRA-MED-202306012238060480-JPVLT

PATIENT
  Age: 31 Year
  Sex: Female
  Weight: 74 kg

DRUGS (1)
  1. CIPROFLOXACIN [Suspect]
     Active Substance: CIPROFLOXACIN
     Indication: Pneumonia
     Dosage: 500 MG, BID
     Dates: start: 20230531, end: 20230601

REACTIONS (4)
  - Rash erythematous [Recovered/Resolved]
  - Myalgia [Not Recovered/Not Resolved]
  - Tongue blistering [Not Recovered/Not Resolved]
  - Urticaria [Recovering/Resolving]

NARRATIVE: CASE EVENT DATE: 20230531
